FAERS Safety Report 6155757-9 (Version None)
Quarter: 2009Q2

REPORT INFORMATION
  Report Type: 
  Country: None (occurrence: None)
  Receive Date: 20090415
  Receipt Date: 20090410
  Transmission Date: 20091009
  Serious: Yes (Hospitalization)
  Sender: FDA-Public Use
  Company Number: US-ABBOTT-09P-163-0567747-00

PATIENT
  Weight: 70.37 kg

DRUGS (14)
  1. HUMIRA [Suspect]
     Indication: CROHN'S DISEASE
     Route: 058
     Dates: start: 20080301
  2. LORA TAB [Concomitant]
     Indication: PAIN
     Dosage: AS NEEDED EVERY 8 HOURS
  3. PREDNISONE [Concomitant]
     Indication: DRUG USE FOR UNKNOWN INDICATION
  4. PREDNISONE [Concomitant]
  5. CELEXA [Concomitant]
     Indication: DRUG USE FOR UNKNOWN INDICATION
  6. LOMOTIL [Concomitant]
     Indication: DIARRHOEA
     Dosage: EVERY FOUR HOURS AS NEEDED
  7. ATIVAN [Concomitant]
     Indication: DRUG USE FOR UNKNOWN INDICATION
  8. PREMPRO [Concomitant]
     Indication: DRUG USE FOR UNKNOWN INDICATION
  9. CALTRATE [Concomitant]
     Indication: DRUG USE FOR UNKNOWN INDICATION
  10. PHENERGAN [Concomitant]
     Indication: DRUG USE FOR UNKNOWN INDICATION
  11. TOPRAL [Concomitant]
     Indication: DRUG USE FOR UNKNOWN INDICATION
  12. CYMBALTA [Concomitant]
     Indication: DRUG USE FOR UNKNOWN INDICATION
  13. AMBIEN [Concomitant]
     Indication: DRUG USE FOR UNKNOWN INDICATION
  14. XANEX [Concomitant]
     Indication: DRUG USE FOR UNKNOWN INDICATION
     Dosage: TWICE A DAY AS NEEDED

REACTIONS (9)
  - ANOREXIA [None]
  - CROHN'S DISEASE [None]
  - GASTROENTERITIS [None]
  - HYPERALBUMINAEMIA [None]
  - MALNUTRITION [None]
  - MENTAL STATUS CHANGES [None]
  - NAUSEA [None]
  - RENAL FAILURE [None]
  - VOMITING [None]
